FAERS Safety Report 26074616 (Version 2)
Quarter: 2025Q4

REPORT INFORMATION
  Report Type: Report from Study
  Country: EU (occurrence: EU)
  Receive Date: 20251121
  Receipt Date: 20251124
  Transmission Date: 20260117
  Serious: Yes (Hospitalization, Other)
  Sender: ABBVIE
  Company Number: EU-ABBVIE-6556041

PATIENT
  Age: 82 Year
  Sex: Female

DRUGS (2)
  1. CARBIDOPA\LEVODOPA [Suspect]
     Active Substance: CARBIDOPA\LEVODOPA
     Indication: Parkinson^s disease
     Dosage: LAST ADMIN DATE - NOV 2025
     Route: 050
     Dates: start: 20251106
  2. CARBIDOPA\LEVODOPA [Suspect]
     Active Substance: CARBIDOPA\LEVODOPA

REACTIONS (9)
  - Diarrhoea [Recovering/Resolving]
  - Vomiting [Unknown]
  - Dyskinesia [Not Recovered/Not Resolved]
  - Neuropsychological symptoms [Recovering/Resolving]
  - Dehydration [Recovering/Resolving]
  - Weight decreased [Unknown]
  - Hallucination [Recovering/Resolving]
  - On and off phenomenon [Unknown]
  - Asthenia [Unknown]

NARRATIVE: CASE EVENT DATE: 20251101
